FAERS Safety Report 5505534-4 (Version None)
Quarter: 2007Q4

REPORT INFORMATION
  Report Type: 
  Country: None (occurrence: None)
  Receive Date: 20071102
  Receipt Date: 20071022
  Transmission Date: 20080405
  Serious: Yes (Hospitalization)
  Sender: FDA-Public Use
  Company Number: US-SHR-US-2007-039795

PATIENT
  Age: 32 Year
  Sex: Female

DRUGS (2)
  1. BETASERON [Suspect]
     Route: 058
  2. REBIF [Suspect]
     Dates: end: 20070110

REACTIONS (2)
  - NORMAL NEWBORN [None]
  - PRECANCEROUS CELLS PRESENT [None]
